FAERS Safety Report 5906974-1 (Version None)
Quarter: 2008Q4

REPORT INFORMATION
  Report Type: 
  Country: None (occurrence: None)
  Receive Date: 20081002
  Receipt Date: 20081002
  Transmission Date: 20090506
  Serious: Yes (Other)
  Sender: FDA-Public Use
  Company Number: None

PATIENT
  Age: 52 Year
  Sex: Female
  Weight: 93.8946 kg

DRUGS (1)
  1. NEXIUM [Suspect]
     Indication: GASTROOESOPHAGEAL REFLUX DISEASE
     Dosage: 1 CAP ONCE A DAY PO
     Route: 048
     Dates: start: 20081001, end: 20081001

REACTIONS (4)
  - DIZZINESS [None]
  - DRY EYE [None]
  - DRY MOUTH [None]
  - FATIGUE [None]
